FAERS Safety Report 6739417-9 (Version None)
Quarter: 2010Q2

REPORT INFORMATION
  Report Type: 
  Country: None (occurrence: None)
  Receive Date: 20100521
  Receipt Date: 20100511
  Transmission Date: 20101027
  Serious: Yes (Other)
  Sender: FDA-Public Use
  Company Number: 1000012912

PATIENT
  Sex: Female

DRUGS (5)
  1. ESCITALOPRAM [Suspect]
     Indication: DEPRESSION
     Dosage: 20 MG (20 MG, 1 IN 1 D), ORAL
     Route: 048
     Dates: start: 20090701, end: 20100101
  2. ESCITALOPRAM [Suspect]
     Indication: DEPRESSION
     Dosage: 10 MG (10 MG, 1 IN 1 D), ORAL
     Route: 048
     Dates: start: 20100101
  3. ARTANE [Suspect]
     Indication: TORTICOLLIS
     Dosage: 6 MG (2 MG, 3 IN 1 D)
     Dates: start: 20090901
  4. ARTANE [Suspect]
     Indication: TORTICOLLIS
     Dosage: 4 MG (2 MG, 2 IN 1 D)
  5. NEBILOX [Concomitant]

REACTIONS (6)
  - BLUNTED AFFECT [None]
  - DISSOCIATION [None]
  - DRUG INTERACTION [None]
  - FATIGUE [None]
  - PSYCHOMOTOR RETARDATION [None]
  - SOMNOLENCE [None]
